FAERS Safety Report 13003521 (Version 2)
Quarter: 2017Q1

REPORT INFORMATION
  Report Type: Spontaneous
  Country: SA (occurrence: SA)
  Receive Date: 20161206
  Receipt Date: 20170103
  Transmission Date: 20170428
  Serious: Yes (Hospitalization, Other)
  Sender: FDA-Public Use
  Company Number: SA-BAYER-2016-229716

PATIENT
  Age: 66 Year
  Sex: Male

DRUGS (1)
  1. STIVARGA [Suspect]
     Active Substance: REGORAFENIB
     Indication: COLORECTAL CANCER METASTATIC
     Dosage: 80 MG DOSE
     Dates: start: 201611

REACTIONS (4)
  - Colorectal cancer metastatic [None]
  - Pleural effusion [None]
  - Metastases to lung [None]
  - Left ventricular dysfunction [None]
